APPROVED DRUG PRODUCT: RIFAMPIN
Active Ingredient: RIFAMPIN
Strength: 150MG
Dosage Form/Route: CAPSULE;ORAL
Application: A090034 | Product #001 | TE Code: AB
Applicant: LUPIN PHARMACEUTICALS INC
Approved: Aug 21, 2013 | RLD: No | RS: No | Type: RX